FAERS Safety Report 13119027 (Version 1)
Quarter: 2017Q1

REPORT INFORMATION
  Report Type: Other
  Country: US (occurrence: US)
  Receive Date: 20170116
  Receipt Date: 20170116
  Transmission Date: 20170428
  Serious: Yes (Death)
  Sender: FDA-Public Use
  Company Number: US-LEHIGH_VALLEY-USA-POI0580201700004

PATIENT
  Age: 54 Year
  Sex: Male

DRUGS (8)
  1. GABAPENTIN. [Suspect]
     Active Substance: GABAPENTIN
     Dates: end: 2015
  2. METOPROLOL. [Suspect]
     Active Substance: METOPROLOL
     Dates: end: 2015
  3. FUROSEMIDE. [Suspect]
     Active Substance: FUROSEMIDE
     Dates: end: 2015
  4. ROSUVASTATIN. [Suspect]
     Active Substance: ROSUVASTATIN
     Dates: end: 2015
  5. LISINOPRIL. [Suspect]
     Active Substance: LISINOPRIL
     Dates: end: 2015
  6. OMEPRAZOLE. [Suspect]
     Active Substance: OMEPRAZOLE
     Dates: end: 2015
  7. POTASSIUM CHLORIDE ORAL SOLUTION [Suspect]
     Active Substance: POTASSIUM CHLORIDE
     Dates: end: 2015
  8. BENZODIAZEPINE [Suspect]
     Active Substance: BENZODIAZEPINE
     Dates: end: 2015

REACTIONS (1)
  - Completed suicide [Fatal]

NARRATIVE: CASE EVENT DATE: 2015
